FAERS Safety Report 12194639 (Version 4)
Quarter: 2016Q3

REPORT INFORMATION
  Report Type: Spontaneous
  Country: US (occurrence: US)
  Receive Date: 20160321
  Receipt Date: 20160712
  Transmission Date: 20161109
  Serious: Yes (Other)
  Sender: FDA-Public Use
  Company Number: US-PFIZER INC-2016160277

PATIENT
  Age: 56 Year
  Sex: Female
  Weight: 52.61 kg

DRUGS (20)
  1. LITHIUM. [Concomitant]
     Active Substance: LITHIUM
     Dosage: 1050 MG, 1X/DAY
     Route: 048
     Dates: start: 20150430
  2. GEODON [Suspect]
     Active Substance: ZIPRASIDONE HYDROCHLORIDE\ZIPRASIDONE MESYLATE
     Dosage: 20MG IN THE MORNING AND 40MG IN THE EVENING FOR 2 WEEKS
     Route: 048
  3. LACTASE [Concomitant]
     Active Substance: LACTASE
     Indication: LACTOSE INTOLERANCE
     Dosage: 1 DF, 1X/DAY
     Dates: start: 2001
  4. LAMICTAL [Concomitant]
     Active Substance: LAMOTRIGINE
     Dosage: 262.5 MG, DAILY
     Route: 048
  5. SYNTHROID [Concomitant]
     Active Substance: LEVOTHYROXINE SODIUM
     Dosage: 0.044 MG, DAILY (SATURDAY)
     Route: 048
  6. LITHIUM. [Concomitant]
     Active Substance: LITHIUM
     Indication: BIPOLAR I DISORDER
     Dosage: 900 MG, 1X/DAY (300 MG; 3 TABS QHS)
     Route: 048
     Dates: start: 1996
  7. EPIPEN [Concomitant]
     Active Substance: EPINEPHRINE
     Indication: ANAPHYLACTIC REACTION
     Dosage: 0.3 MG, AS NEEDED [DAILY, 1 EA]
     Route: 030
  8. XANAX [Concomitant]
     Active Substance: ALPRAZOLAM
     Indication: ANXIETY
     Dosage: 0.25 MG, AS NEEDED
     Route: 048
  9. GEODON [Suspect]
     Active Substance: ZIPRASIDONE HYDROCHLORIDE\ZIPRASIDONE MESYLATE
     Dosage: 40 MG, 2X/DAY (40 MG IN THE MORNING AND 40 MG AT NIGHT)
     Route: 048
  10. LAMOTRIGINE. [Concomitant]
     Active Substance: LAMOTRIGINE
     Indication: BIPOLAR I DISORDER
     Dosage: 275 MG, 1X/DAY
     Route: 048
     Dates: start: 2000
  11. GEODON [Suspect]
     Active Substance: ZIPRASIDONE HYDROCHLORIDE\ZIPRASIDONE MESYLATE
     Indication: BIPOLAR DISORDER
     Dosage: 20 MG, 3X/DAY
     Route: 048
  12. GEODON [Suspect]
     Active Substance: ZIPRASIDONE HYDROCHLORIDE\ZIPRASIDONE MESYLATE
     Dosage: ON A MAINTENANCE DOSE OF 40MG TWICE A DAY.
     Route: 048
  13. GEODON [Suspect]
     Active Substance: ZIPRASIDONE HYDROCHLORIDE\ZIPRASIDONE MESYLATE
     Dosage: 20MG, 1X/DAY
     Route: 048
     Dates: end: 20160131
  14. ALPRAZOLAM. [Concomitant]
     Active Substance: ALPRAZOLAM
     Indication: ANXIETY
     Dosage: 0.25 MG, AS NEEDED
     Route: 048
     Dates: start: 2002
  15. VITAMIN D3 [Concomitant]
     Active Substance: CHOLECALCIFEROL
     Dosage: 5000 IU, DAILY (WITH FOOD)
     Route: 048
  16. GEODON [Suspect]
     Active Substance: ZIPRASIDONE HYDROCHLORIDE\ZIPRASIDONE MESYLATE
     Indication: ANGER
     Dosage: AN ESCALATING DOSE OF 20MG TWICE A DAY
     Route: 048
     Dates: start: 20141224
  17. GEODON [Suspect]
     Active Substance: ZIPRASIDONE HYDROCHLORIDE\ZIPRASIDONE MESYLATE
     Dosage: 20MG, 2X/DAY (MORNING AND EVENING FOR 2 WEEKS)
     Route: 048
  18. GEODON [Suspect]
     Active Substance: ZIPRASIDONE HYDROCHLORIDE\ZIPRASIDONE MESYLATE
     Dosage: 2X/DAY (20 MG IN THE MORNING AND 40 MG AT NIGHT)
     Route: 048
  19. SYNTHROID [Concomitant]
     Active Substance: LEVOTHYROXINE SODIUM
     Indication: HYPOTHYROIDISM
     Dosage: 0.088 MG, 1X/DAY
     Route: 048
     Dates: start: 199608
  20. VITAMIN D [Concomitant]
     Active Substance: CHOLECALCIFEROL
     Indication: VITAMIN D DEFICIENCY
     Dosage: 5000 IU, DAILY
     Route: 048
     Dates: start: 2002

REACTIONS (16)
  - Muscle twitching [Unknown]
  - Muscle spasms [Unknown]
  - Pollakiuria [Unknown]
  - Dystonia [Unknown]
  - Palpitations [Unknown]
  - Oesophagitis [Not Recovered/Not Resolved]
  - Tremor [Unknown]
  - Hypertension [Not Recovered/Not Resolved]
  - Anxiety [Unknown]
  - Dizziness [Unknown]
  - Gastritis [Not Recovered/Not Resolved]
  - Condition aggravated [Unknown]
  - Mental disorder [Recovered/Resolved]
  - Stress [Recovering/Resolving]
  - Thirst [Unknown]
  - Chest discomfort [Recovered/Resolved]

NARRATIVE: CASE EVENT DATE: 20151101
